FAERS Safety Report 17595409 (Version 1)
Quarter: 2020Q1

REPORT INFORMATION
  Report Type: Report from Study
  Country: None (occurrence: FR)
  Receive Date: 20200329
  Receipt Date: 20200329
  Transmission Date: 20200409
  Serious: Yes (Other)
  Sender: FDA-Public Use
  Company Number: FR-UNICHEM PHARMACEUTICALS (USA) INC-UCM202003-000364

PATIENT
  Age: 10 Year
  Sex: Female

DRUGS (1)
  1. CETIRIZINE, HCL [Suspect]
     Active Substance: CETIRIZINE HYDROCHLORIDE
     Indication: ACCIDENTAL EXPOSURE TO PRODUCT BY CHILD
     Dosage: TWO 10 MG TABLETS OF CETIRIZINE

REACTIONS (5)
  - Confusional state [Unknown]
  - Headache [Unknown]
  - Incoherent [Unknown]
  - Disorientation [Unknown]
  - Accidental exposure to product by child [Unknown]
